FAERS Safety Report 5018775-X (Version None)
Quarter: 2006Q2

REPORT INFORMATION
  Report Type: 
  Country: None (occurrence: None)
  Receive Date: 20060531
  Receipt Date: 20060517
  Transmission Date: 20061013
  Serious: Yes (Hospitalization)
  Sender: FDA-Public Use
  Company Number: 200612531BWH

PATIENT
  Age: 75 Year
  Sex: Male
  Weight: 69.8539 kg

DRUGS (1)
  1. NEXAVAR [Suspect]
     Dosage: 400 MG, BID, ORAL
     Route: 048
     Dates: start: 20060221, end: 20060301

REACTIONS (1)
  - PALMAR-PLANTAR ERYTHRODYSAESTHESIA SYNDROME [None]
